FAERS Safety Report 13198671 (Version 1)
Quarter: 2017Q1

REPORT INFORMATION
  Report Type: Spontaneous
  Country: US (occurrence: US)
  Receive Date: 20170208
  Receipt Date: 20170208
  Transmission Date: 20170428
  Serious: No
  Sender: FDA-Public Use
  Company Number: US-AMGEN-USASP2016037951

PATIENT
  Age: 81 Year
  Sex: Female

DRUGS (2)
  1. NEULASTA [Suspect]
     Active Substance: PEGFILGRASTIM
     Indication: PRODUCT USED FOR UNKNOWN INDICATION
     Dosage: UNK
     Route: 065
  2. TRAMADOL. [Concomitant]
     Active Substance: TRAMADOL
     Dosage: UNK

REACTIONS (6)
  - Fatigue [Unknown]
  - Abdominal distension [Unknown]
  - Walking aid user [Unknown]
  - Catheter site haemorrhage [Unknown]
  - Back pain [Recovered/Resolved]
  - Device issue [Unknown]
